FAERS Safety Report 8967491 (Version 1)
Quarter: 2012Q4

REPORT INFORMATION
  Report Type: 
  Country: CN (occurrence: CN)
  Receive Date: 20121214
  Receipt Date: 20121214
  Transmission Date: 20130627
  Serious: Yes (Other)
  Sender: FDA-Public Use
  Company Number: CN-ASTRAZENECA-2012SE91817

PATIENT
  Age: 2 Month
  Sex: Male

DRUGS (3)
  1. PULMICORT RESPULES [Suspect]
     Indication: BRONCHITIS
     Dosage: 1 mg in 2ml, twice a day
     Route: 055
     Dates: start: 20110218, end: 20110218
  2. COBBETTES LIQUID [Concomitant]
     Indication: BRONCHITIS
     Dates: start: 20110218, end: 20110218
  3. COBBETTES LIQUID [Concomitant]
     Indication: BRONCHITIS
     Dates: start: 20110218

REACTIONS (6)
  - Flushing [Recovering/Resolving]
  - Flushing [Recovering/Resolving]
  - Heart rate increased [Recovering/Resolving]
  - Body temperature increased [Recovering/Resolving]
  - Irritability [Recovering/Resolving]
  - Restlessness [Unknown]
